FAERS Safety Report 7443396-9 (Version None)
Quarter: 2011Q2

REPORT INFORMATION
  Report Type: 
  Country: None (occurrence: None)
  Receive Date: 20110420
  Receipt Date: 20110405
  Transmission Date: 20111010
  Serious: No
  Sender: FDA-Public Use
  Company Number: THQ2011A01898

PATIENT
  Age: 27 Year
  Sex: Female
  Weight: 91.173 kg

DRUGS (4)
  1. PREVPAC [Suspect]
     Indication: HELICOBACTER INFECTION
     Dates: end: 20110405
  2. PREDNISONE [Suspect]
     Indication: ARTHRITIS
  3. OMEPRAZOLE [Suspect]
     Indication: GASTRITIS
  4. HUMIRA PENS (ADALIMUMAB) [Concomitant]

REACTIONS (9)
  - HYPOTONIA [None]
  - ABSCESS [None]
  - CROHN'S DISEASE [None]
  - CYSTITIS NONINFECTIVE [None]
  - POLLAKIURIA [None]
  - ARTHRALGIA [None]
  - FISTULA [None]
  - NAUSEA [None]
  - HELICOBACTER INFECTION [None]
